FAERS Safety Report 9396579 (Version 2)
Quarter: 2013Q3

REPORT INFORMATION
  Report Type: Spontaneous
  Country: US (occurrence: US)
  Receive Date: 20130711
  Receipt Date: 20130719
  Transmission Date: 20140515
  Serious: Yes (Hospitalization, Other)
  Sender: FDA-Public Use
  Company Number: US-AMGEN-USASP2013046927

PATIENT
  Age: 72 Year
  Sex: Female
  Weight: 77.1 kg

DRUGS (10)
  1. ENBREL [Suspect]
     Indication: PRODUCT USED FOR UNKNOWN INDICATION
     Dosage: 50 UNK, QD
     Route: 065
     Dates: start: 201004, end: 201104
  2. PREDNISONE [Suspect]
     Indication: HEPATIC CANCER
     Dosage: UNK
     Dates: start: 201105, end: 201112
  3. KERAFOAM [Suspect]
     Indication: ACNE
     Dosage: UNK UNK, BID
     Route: 061
     Dates: start: 20101029, end: 2010
  4. CYCLOPHOSPHAMIDE [Suspect]
     Indication: HEPATIC CANCER
     Dosage: UNK
     Dates: start: 201105, end: 201112
  5. DOXORUBICIN [Suspect]
     Indication: HEPATIC CANCER
     Dosage: UNK
     Dates: start: 201105, end: 201112
  6. VINCRISTINE [Suspect]
     Dosage: UNK
  7. RITUXIMAB [Suspect]
     Indication: HEPATIC CANCER
     Dosage: UNK
     Dates: start: 201105, end: 201112
  8. RETIN A [Concomitant]
     Dosage: UNK
  9. LEVOTHYROXINE [Concomitant]
     Dosage: 0.125MG
     Dates: start: 2004
  10. CRESTOR [Concomitant]
     Dosage: 25 MG, QD
     Dates: start: 2001

REACTIONS (10)
  - Hepatic cancer stage IV [Recovered/Resolved]
  - Renal failure [Unknown]
  - B-cell lymphoma [Unknown]
  - Type 2 diabetes mellitus [Not Recovered/Not Resolved]
  - Neuropathy peripheral [Not Recovered/Not Resolved]
  - Coma [Unknown]
  - Kidney infection [Unknown]
  - Dysstasia [Unknown]
  - Skin ulcer [Unknown]
  - Inappropriate schedule of drug administration [Unknown]
